FAERS Safety Report 18383446 (Version 4)
Quarter: 2022Q1

REPORT INFORMATION
  Report Type: Report from Study
  Country: CA (occurrence: CA)
  Receive Date: 20201014
  Receipt Date: 20220328
  Transmission Date: 20220423
  Serious: Yes (Other)
  Sender: FDA-Public Use
  Company Number: CA-JNJFOC-20201015907

PATIENT
  Age: 15 Year
  Sex: Male
  Weight: 55 kg

DRUGS (3)
  1. REMICADE [Suspect]
     Active Substance: INFLIXIMAB
     Indication: Crohn^s disease
     Dosage: 23/APR/2020 (PREVIOUSLY REPORTED). ON 29-APR-2021, THE PATIENT RECEIVE 30TH INFLIXIMAB INFUSION AT D
     Route: 042
     Dates: start: 20170103
  2. REMICADE [Suspect]
     Active Substance: INFLIXIMAB
     Dosage: WILL RELOAD AT 500MG 0,2,6 Q6 WEEKS
     Route: 042
  3. REMICADE [Suspect]
     Active Substance: INFLIXIMAB
     Dosage: REMICADE DOSE INCREASED TO 600 MG TARGETING HIGH TDM LEVELS TO TREAT AN ACTIVE FISTULA
     Route: 042

REACTIONS (5)
  - Crohn^s disease [Unknown]
  - Fistula [Unknown]
  - Inappropriate schedule of product administration [Unknown]
  - Off label use [Unknown]
  - Product use issue [Unknown]

NARRATIVE: CASE EVENT DATE: 20200101
